FAERS Safety Report 15592800 (Version 1)
Quarter: 2018Q4

REPORT INFORMATION
  Report Type: Report from Study
  Country: None (occurrence: BE)
  Receive Date: 20181106
  Receipt Date: 20181106
  Transmission Date: 20190205
  Serious: Yes (Hospitalization)
  Sender: FDA-Public Use
  Company Number: BE-ABBVIE-18S-013-2538224-00

PATIENT
  Sex: Male

DRUGS (3)
  1. DUODOPA [Suspect]
     Active Substance: CARBIDOPA\LEVODOPA
     Indication: PARKINSON^S DISEASE
     Dosage: MD= ML;CD=2ML/HR DURING 16HRS ;ED=0.8ML
     Route: 050
     Dates: start: 20080310, end: 20140310
  2. DUODOPA [Suspect]
     Active Substance: CARBIDOPA\LEVODOPA
     Dosage: MD=2.5ML;CD=2.5ML/HR DURING 16HRS ;ED=0.6ML;ND=1.6ML/HR DURING 8HRS
     Route: 050
     Dates: start: 20180924
  3. DUODOPA [Suspect]
     Active Substance: CARBIDOPA\LEVODOPA
     Dosage: DOSES CONTINUOUSLY MONITORED AND ADAPTED
     Route: 050
     Dates: start: 20140310, end: 20180929

REACTIONS (2)
  - Fall [Recovered/Resolved]
  - Device issue [Unknown]
